FAERS Safety Report 11963335 (Version 1)
Quarter: 2016Q1

REPORT INFORMATION
  Report Type: Report from Study
  Country: US (occurrence: US)
  Receive Date: 20160126
  Receipt Date: 20160126
  Transmission Date: 20160526
  Serious: No
  Sender: FDA-Public Use
  Company Number: US-ABBVIE-15K-163-1378152-00

PATIENT
  Age: 28 Year
  Sex: Female

DRUGS (1)
  1. HUMIRA [Suspect]
     Active Substance: ADALIMUMAB
     Indication: CROHN^S DISEASE
     Route: 065
     Dates: start: 20150411

REACTIONS (14)
  - Vomiting [Recovered/Resolved]
  - Injection site pain [Unknown]
  - Pneumonia [Not Recovered/Not Resolved]
  - Rash papular [Unknown]
  - Skin infection [Unknown]
  - Body temperature abnormal [Unknown]
  - Fatigue [Recovered/Resolved]
  - Eyelid pain [Unknown]
  - Fatigue [Unknown]
  - Erythema [Unknown]
  - Back pain [Not Recovered/Not Resolved]
  - Headache [Unknown]
  - Insomnia [Unknown]
  - Nausea [Unknown]

NARRATIVE: CASE EVENT DATE: 201504
